FAERS Safety Report 8805634 (Version 1)
Quarter: 2012Q4

REPORT INFORMATION
  Report Type: Report from Study
  Country: BR (occurrence: BR)
  Receive Date: 20120924
  Receipt Date: 20120924
  Transmission Date: 20130627
  Serious: Yes (Hospitalization)
  Sender: FDA-Public Use
  Company Number: BR-ACTELION-A-CH2012-71585

PATIENT
  Age: 55 Year
  Sex: Female

DRUGS (2)
  1. TRACLEER [Suspect]
     Indication: PULMONARY ARTERIAL HYPERTENSION
     Dosage: 125 mg, bid
     Route: 048
  2. ASA [Concomitant]

REACTIONS (6)
  - Coronary artery occlusion [Unknown]
  - Anaemia [Recovered/Resolved]
  - Gastric ulcer [Unknown]
  - Stent placement [Unknown]
  - Haematochezia [Unknown]
  - Transfusion [Recovered/Resolved]
